FAERS Safety Report 21746746 (Version 1)
Quarter: 2022Q4

REPORT INFORMATION
  Report Type: Report from Study
  Country: US (occurrence: US)
  Receive Date: 20221219
  Receipt Date: 20221219
  Transmission Date: 20230113
  Serious: No
  Sender: FDA-Public Use
  Company Number: US-002147023-NVSC2022US289403

PATIENT
  Sex: Female

DRUGS (1)
  1. KESIMPTA [Suspect]
     Active Substance: OFATUMUMAB
     Indication: Relapsing multiple sclerosis
     Dosage: UNK
     Route: 058

REACTIONS (8)
  - Rash [Unknown]
  - Fall [Unknown]
  - Lower limb fracture [Unknown]
  - Back pain [Unknown]
  - Hypoaesthesia [Unknown]
  - Neck pain [Unknown]
  - Arthralgia [Unknown]
  - Tachycardia [Unknown]
